FAERS Safety Report 5022193-8 (Version None)
Quarter: 2006Q2

REPORT INFORMATION
  Report Type: 
  Country: None (occurrence: None)
  Receive Date: 20060609
  Receipt Date: 20060605
  Transmission Date: 20061013
  Serious: Yes (Hospitalization)
  Sender: FDA-Public Use
  Company Number: IT-BRISTOL-MYERS SQUIBB COMPANY-13402094

PATIENT
  Age: 79 Year
  Sex: Female

DRUGS (1)
  1. APROVEL TABS 300 MG [Suspect]
     Indication: HYPERTENSION
     Route: 048
     Dates: start: 20060501, end: 20060524

REACTIONS (1)
  - LICHENOID KERATOSIS [None]
